FAERS Safety Report 6997973-X (Version None)
Quarter: 2010Q3

REPORT INFORMATION
  Report Type: 
  Country: None (occurrence: None)
  Receive Date: 20100920
  Receipt Date: 20100906
  Transmission Date: 20110219
  Serious: Yes (Death)
  Sender: FDA-Public Use
  Company Number: NL-JNJFOC-20100902673

PATIENT
  Sex: Female
  Weight: 63 kg

DRUGS (6)
  1. INFLIXIMAB, RECOMBINANT [Suspect]
     Indication: RHEUMATOID ARTHRITIS
     Route: 042
  2. CALCIUM [Concomitant]
     Indication: OSTEOPOROSIS PROPHYLAXIS
  3. ACTONEL [Concomitant]
     Indication: OSTEOPOROSIS PROPHYLAXIS
  4. PREDNISONE [Concomitant]
     Indication: LUNG DISORDER
  5. VITAMIN D [Concomitant]
     Indication: OSTEOPOROSIS PROPHYLAXIS
  6. GOLD [Concomitant]

REACTIONS (2)
  - LUNG NEOPLASM MALIGNANT [None]
  - RESPIRATORY FAILURE [None]
